FAERS Safety Report 6101961-5 (Version None)
Quarter: 2009Q1

REPORT INFORMATION
  Report Type: 
  Country: None (occurrence: None)
  Receive Date: 20090303
  Receipt Date: 20090303
  Transmission Date: 20090719
  Serious: No
  Sender: FDA-Public Use
  Company Number: None

PATIENT
  Age: 53 Year
  Sex: Female
  Weight: 70.3075 kg

DRUGS (4)
  1. ACIPHEX [Suspect]
     Indication: EROSIVE OESOPHAGITIS
     Dosage: 20 MG. 2X DAILY PO 2 YEARS OFF AND ON
     Route: 048
  2. ACIPHEX [Suspect]
     Indication: GASTROOESOPHAGEAL REFLUX DISEASE
     Dosage: 20 MG. 2X DAILY PO 2 YEARS OFF AND ON
     Route: 048
  3. NEXIUM [Suspect]
     Indication: EROSIVE OESOPHAGITIS
     Dosage: 20 MG. 1X DAILY PO 2 YEARS OFF AND ON
     Route: 048
  4. NEXIUM [Suspect]
     Indication: GASTROOESOPHAGEAL REFLUX DISEASE
     Dosage: 20 MG. 1X DAILY PO 2 YEARS OFF AND ON
     Route: 048

REACTIONS (8)
  - ANGER [None]
  - ARTHROPATHY [None]
  - CLAUSTROPHOBIA [None]
  - DEPRESSION [None]
  - FATIGUE [None]
  - GASTROOESOPHAGEAL REFLUX DISEASE [None]
  - MENOPAUSE [None]
  - PANIC ATTACK [None]
